FAERS Safety Report 8485207-9 (Version None)
Quarter: 2012Q3

REPORT INFORMATION
  Report Type: 
  Country: None (occurrence: None)
  Receive Date: 20120703
  Receipt Date: 20120626
  Transmission Date: 20120928
  Serious: Yes (Hospitalization)
  Sender: FDA-Public Use
  Company Number: BR-US-EMD SERONO, INC.-7116506

PATIENT
  Sex: Female

DRUGS (3)
  1. GABAPENTINA [Concomitant]
     Indication: PRODUCT USED FOR UNKNOWN INDICATION
  2. REBIF [Suspect]
     Indication: RELAPSING-REMITTING MULTIPLE SCLEROSIS
     Dates: start: 20100512
  3. UNSPECIFIED DROP EYE [Concomitant]
     Indication: PRODUCT USED FOR UNKNOWN INDICATION

REACTIONS (12)
  - INJECTION SITE HAEMATOMA [None]
  - MICTURITION URGENCY [None]
  - HYPOAESTHESIA [None]
  - ARTHRALGIA [None]
  - DIZZINESS [None]
  - SENSATION OF HEAVINESS [None]
  - FATIGUE [None]
  - MULTIPLE SCLEROSIS RELAPSE [None]
  - HEADACHE [None]
  - MUSCULAR WEAKNESS [None]
  - DYSPNOEA [None]
  - AMENORRHOEA [None]
